FAERS Safety Report 8044805-7 (Version None)
Quarter: 2012Q1

REPORT INFORMATION
  Report Type: 
  Country: None (occurrence: None)
  Receive Date: 20120113
  Receipt Date: 20120112
  Transmission Date: 20120608
  Serious: Yes (Death, Hospitalization)
  Sender: FDA-Public Use
  Company Number: JP-ABBOTT-10P-087-0666759-00

PATIENT
  Sex: Male
  Weight: 80 kg

DRUGS (8)
  1. METHOTREXATE [Concomitant]
     Indication: RHEUMATOID ARTHRITIS
     Route: 048
     Dates: start: 20090218
  2. PREDNISOLONE [Concomitant]
     Indication: RHEUMATOID ARTHRITIS
     Dates: start: 20090218
  3. AMLODIPINE BESYLATE [Concomitant]
     Indication: HYPERTENSION
     Dates: start: 20090218
  4. ALLOPURINOL [Concomitant]
     Indication: HYPERURICAEMIA
     Dates: start: 20090218
  5. NILVADIPINE [Concomitant]
     Indication: HYPERTENSION
     Dates: start: 20090218
  6. OMEPRAZOLE [Concomitant]
     Indication: GASTRIC ULCER
     Dates: start: 20090218
  7. HUMIRA [Suspect]
     Indication: RHEUMATOID ARTHRITIS
     Route: 058
     Dates: start: 20100623
  8. POTASSIUM CITRATE/SODIUM CITRATE HYDRATE [Concomitant]
     Indication: HYPERURICAEMIA
     Dates: start: 20090218

REACTIONS (2)
  - PNEUMOCYSTIS JIROVECI PNEUMONIA [None]
  - GASTROINTESTINAL HAEMORRHAGE [None]
